FAERS Safety Report 7647491-0 (Version None)
Quarter: 2011Q3

REPORT INFORMATION
  Report Type: 
  Country: None (occurrence: None)
  Receive Date: 20110801
  Receipt Date: 20110712
  Transmission Date: 20111222
  Serious: Yes (Hospitalization)
  Sender: FDA-Public Use
  Company Number: US-GLAXOSMITHKLINE-A0870172A

PATIENT
  Age: 62 Year
  Sex: Male
  Weight: 110 kg

DRUGS (8)
  1. ATENOLOL [Concomitant]
  2. LISINOPRIL [Concomitant]
  3. NORVASC [Concomitant]
  4. HYDROCHLOROTHIAZIDE [Concomitant]
  5. PROTONIX [Concomitant]
  6. AVANDIA [Suspect]
     Indication: DIABETES MELLITUS
     Dosage: 8MG PER DAY
     Route: 048
     Dates: start: 20000101, end: 20080304
  7. GLIPIZIDE [Concomitant]
  8. DIOVAN [Concomitant]

REACTIONS (4)
  - FALL [None]
  - CEREBROVASCULAR ACCIDENT [None]
  - ISCHAEMIC STROKE [None]
  - CEREBRAL INFARCTION [None]
